FAERS Safety Report 5393742-5 (Version None)
Quarter: 2007Q3

REPORT INFORMATION
  Report Type: 
  Country: None (occurrence: None)
  Receive Date: 20070719
  Receipt Date: 20070719
  Transmission Date: 20080115
  Serious: Yes (Life-Threatening, Hospitalization)
  Sender: FDA-Public Use
  Company Number: None

PATIENT
  Age: 84 Year
  Sex: Male
  Weight: 69.4 kg

DRUGS (6)
  1. IBUPROFEN [Suspect]
  2. CLONIDINE HCL [Concomitant]
  3. DILTIAZEM [Concomitant]
  4. MONTELUKAST NA [Concomitant]
  5. SIMVASTATIN [Concomitant]
  6. MOMETASONE FUROATE [Concomitant]

REACTIONS (1)
  - HAEMORRHAGE [None]
